FAERS Safety Report 6121613-5 (Version None)
Quarter: 2009Q1

REPORT INFORMATION
  Report Type: 
  Country: None (occurrence: None)
  Receive Date: 20090317
  Receipt Date: 20090309
  Transmission Date: 20090719
  Serious: Yes (Other)
  Sender: FDA-Public Use
  Company Number: PHHY2009TH08561

PATIENT
  Sex: Female

DRUGS (1)
  1. ZOMETA [Suspect]
     Indication: BREAST CANCER
     Dosage: UNK
     Route: 042
     Dates: start: 20071101

REACTIONS (4)
  - MASTICATION DISORDER [None]
  - PURULENT DISCHARGE [None]
  - TOOTH EXTRACTION [None]
  - TOOTHACHE [None]
